FAERS Safety Report 15435844 (Version 2)
Quarter: 2018Q4

REPORT INFORMATION
  Report Type: Report from Study
  Country: MX (occurrence: MX)
  Receive Date: 20180927
  Receipt Date: 20181009
  Transmission Date: 20190204
  Serious: Yes (Other)
  Sender: FDA-Public Use
  Company Number: PHHY2018MX107589

PATIENT
  Sex: Female
  Weight: 68 kg

DRUGS (4)
  1. CO-DIOVAN [Suspect]
     Active Substance: HYDROCHLOROTHIAZIDE\VALSARTAN
     Indication: HYPERTENSION
     Dosage: 1 DF, QD (APPROXIMATELY 20 YEARS AGO) (HYDROCHLOROTHIAZIDE 25 MG, VALSARTAN 160 MG)
     Route: 048
  2. VALSARTAN. [Concomitant]
     Active Substance: VALSARTAN
     Indication: HYPERTENSION
     Dosage: 2 DF, QD (6 OR 7 YEARS AGO)
     Route: 048
  3. CO-DIOVAN [Suspect]
     Active Substance: HYDROCHLOROTHIAZIDE\VALSARTAN
     Dosage: 1.5 DF, QD (HYDROCHLOROTHIAZIDE 25 MG, VALSARTAN 160 MG)
     Route: 048
  4. HYDROCHLOROTHIAZIDE. [Concomitant]
     Active Substance: HYDROCHLOROTHIAZIDE
     Indication: HYPERTENSION
     Dosage: 1 DF, QD (6 OR 7 YEARS AGO)
     Route: 048

REACTIONS (2)
  - Diabetes mellitus [Recovering/Resolving]
  - Wrong technique in product usage process [Unknown]

NARRATIVE: CASE EVENT DATE: 2000
